FAERS Safety Report 9164979 (Version 1)
Quarter: 2013Q1

REPORT INFORMATION
  Report Type: Spontaneous
  Country: GB (occurrence: None)
  Receive Date: 20130228
  Receipt Date: 20130228
  Transmission Date: 20140127
  Serious: Yes (Hospitalization)
  Sender: FDA-Public Use
  Company Number: AUR-APL-2013-01601

PATIENT
  Age: 47 Year
  Sex: Male

DRUGS (3)
  1. RIBAVIRIN (RIBAVIRIN) [Suspect]
     Indication: HEPATITIS C
     Dosage: (600 MG, 2 IN 1 D)
     Route: 048
     Dates: start: 20120601
  2. PEGINTERFERON ALFA-2A [Suspect]
     Indication: HEPATITIS C
     Dosage: 180 MCG, 1 IN 1 WK, SUBCUTANEOUS
     Dates: start: 20120601
  3. TELAPREVIR (TELAPREVIR) [Suspect]
     Indication: HEPATITIS C
     Dosage: (750 MG, 3 IN 1 D)
     Route: 048
     Dates: start: 20120601, end: 20121107

REACTIONS (9)
  - Pruritus [None]
  - Eating disorder [None]
  - Blood count abnormal [None]
  - Haemoglobin decreased [None]
  - Platelet count decreased [None]
  - Anaemia [None]
  - Infection [None]
  - Confusional state [None]
  - Feeling abnormal [None]
